FAERS Safety Report 5751379 (Version 4)
Quarter: 2022Q3

REPORT INFORMATION
  Report Type: Report from Study
  Country: JP (occurrence: JP)
  Receive Date: 20050304
  Receipt Date: 20220821
  Transmission Date: 20221027
  Serious: Yes (Hospitalization)
  Sender: FDA-Public Use
  Company Number: PHHO2004JP17581

PATIENT
  Age: 61 Year
  Sex: Male
  Weight: 59.7 kg

DRUGS (16)
  1. MYCOPHENOLATE MOFETIL [Suspect]
     Active Substance: MYCOPHENOLATE MOFETIL
     Indication: Renal transplant
     Dosage: 2G
     Route: 048
     Dates: start: 20041016, end: 20041107
  2. MYCOPHENOLATE MOFETIL [Suspect]
     Active Substance: MYCOPHENOLATE MOFETIL
     Dosage: CODE NOT BROKEN (HALF DOSE)
     Route: 048
     Dates: start: 20041108, end: 20041124
  3. MYCOPHENOLATE MOFETIL [Suspect]
     Active Substance: MYCOPHENOLATE MOFETIL
     Dosage: CODE NOT BROKEN (FULL DOSE)
     Route: 048
     Dates: start: 20041125, end: 20041219
  4. MYCOPHENOLATE MOFETIL [Suspect]
     Active Substance: MYCOPHENOLATE MOFETIL
     Dosage: CODE NOT BROKEN (DOSE REDUCED)
     Route: 048
     Dates: start: 20041220, end: 20041227
  5. NEORAL [Suspect]
     Active Substance: CYCLOSPORINE
     Indication: Renal transplant
     Dosage: 300 MG, BID
     Route: 048
     Dates: start: 20041016, end: 20041019
  6. NEORAL [Suspect]
     Active Substance: CYCLOSPORINE
     Dosage: 250 MG, QD
     Route: 048
     Dates: start: 20041020, end: 20041031
  7. NEORAL [Suspect]
     Active Substance: CYCLOSPORINE
     Dosage: 300 MG, QD
     Route: 048
     Dates: start: 20041101, end: 20041117
  8. NEORAL [Suspect]
     Active Substance: CYCLOSPORINE
     Dosage: 250 MG, QD
     Route: 048
     Dates: start: 20041118, end: 20041121
  9. NEORAL [Suspect]
     Active Substance: CYCLOSPORINE
     Dosage: 200 MG, QD
     Route: 048
     Dates: start: 20041122
  10. PREDNISOLONE [Suspect]
     Active Substance: PREDNISOLONE
     Indication: Renal transplant
     Dosage: 15 MG, BID
     Route: 048
     Dates: start: 20041017
  11. CELLCEPT [Suspect]
     Active Substance: MYCOPHENOLATE MOFETIL
     Indication: Renal transplant
     Dosage: 1000 MG, QD
     Route: 048
     Dates: start: 20041227, end: 20050104
  12. CELLCEPT [Suspect]
     Active Substance: MYCOPHENOLATE MOFETIL
     Dosage: 750 MG, QD
     Route: 048
     Dates: start: 20050105, end: 20050106
  13. CELLCEPT [Suspect]
     Active Substance: MYCOPHENOLATE MOFETIL
     Dosage: 500 MG, QD
     Route: 048
     Dates: start: 20050107, end: 20050117
  14. CELLCEPT [Suspect]
     Active Substance: MYCOPHENOLATE MOFETIL
     Dosage: 250 MG, QD
     Route: 048
     Dates: start: 20050118, end: 20050125
  15. MIZORIBINE [Suspect]
     Active Substance: MIZORIBINE
     Indication: Renal transplant
     Dosage: 50 MG, QD
     Route: 048
     Dates: start: 20050118, end: 20050122
  16. MIZORIBINE [Suspect]
     Active Substance: MIZORIBINE
     Dosage: 100 MG, QD
     Route: 048
     Dates: start: 20050123

REACTIONS (12)
  - Incisional hernia [Recovering/Resolving]
  - Fluid retention [Recovering/Resolving]
  - Abdominal distension [Recovering/Resolving]
  - Incarcerated hernia [Recovering/Resolving]
  - Abdominal pain [Recovering/Resolving]
  - Hernia repair [Recovering/Resolving]
  - Pancytopenia [Recovering/Resolving]
  - Cytomegalovirus test positive [Recovering/Resolving]
  - Urinary tract infection [Recovering/Resolving]
  - Pyrexia [Recovering/Resolving]
  - Pseudomonas infection [Recovering/Resolving]
  - Urine output decreased [Recovering/Resolving]

NARRATIVE: CASE EVENT DATE: 20041024
